FAERS Safety Report 4818883-X (Version None)
Quarter: 2005Q4

REPORT INFORMATION
  Report Type: 
  Country: None (occurrence: None)
  Receive Date: 20051031
  Receipt Date: 20051024
  Transmission Date: 20060501
  Serious: Yes (Other)
  Sender: FDA-Public Use
  Company Number: HQWYE995613OCT05

PATIENT
  Age: 34 Year
  Sex: Female

DRUGS (7)
  1. MINOCIN [Suspect]
     Dosage: 100 MG
     Dates: start: 20051008, end: 20051008
  2. LORCAM (LORNOXICAM) [Concomitant]
  3. ISALON (ALDIOXA) [Concomitant]
  4. TIZANIDINE HCL [Concomitant]
  5. ARASENA A (VIDARABINE) [Concomitant]
  6. CLORPRENALINE HYDROCHLORIDE (CLORPRENALINE HYDROCHLORIDE) [Concomitant]
  7. ZITHROMAX [Concomitant]

REACTIONS (6)
  - CONJUNCTIVITIS [None]
  - DYSPNOEA [None]
  - ERYTHEMA [None]
  - LACRIMATION INCREASED [None]
  - SHOCK [None]
  - STRIDOR [None]
